FAERS Safety Report 12949115 (Version 5)
Quarter: 2018Q3

REPORT INFORMATION
  Report Type: Spontaneous
  Country: US (occurrence: US)
  Receive Date: 20161117
  Receipt Date: 20180705
  Transmission Date: 20181010
  Serious: No
  Sender: FDA-Public Use
  Company Number: US-PFIZER INC-2016528610

PATIENT
  Age: 11 Year
  Sex: Male
  Weight: 63 kg

DRUGS (5)
  1. FOCALIN [Concomitant]
     Active Substance: DEXMETHYLPHENIDATE HYDROCHLORIDE
     Dosage: UNK
  2. HYDROCORTISONE. [Concomitant]
     Active Substance: HYDROCORTISONE
     Dosage: UNK
  3. ANAFRANIL [Concomitant]
     Active Substance: CLOMIPRAMINE HYDROCHLORIDE
     Dosage: UNK
  4. GENOTROPIN [Suspect]
     Active Substance: SOMATROPIN
     Indication: GROWTH HORMONE DEFICIENCY
     Dosage: 1.6 MG, DAILY
     Dates: start: 201609
  5. GENOTROPIN [Suspect]
     Active Substance: SOMATROPIN
     Dosage: 2.4 MG, 1X/DAY (NIGHT)
     Route: 058

REACTIONS (8)
  - Psychomotor hyperactivity [Unknown]
  - Insomnia [Unknown]
  - Poor quality device used [Unknown]
  - Injection site haemorrhage [Unknown]
  - Injection site bruising [Unknown]
  - Weight increased [Unknown]
  - Attention deficit/hyperactivity disorder [Unknown]
  - Device issue [Unknown]

NARRATIVE: CASE EVENT DATE: 201610
